FAERS Safety Report 14655607 (Version 1)
Quarter: 2018Q1

REPORT INFORMATION
  Report Type: Spontaneous
  Country: US (occurrence: US)
  Receive Date: 20180319
  Receipt Date: 20180319
  Transmission Date: 20180509
  Serious: No
  Sender: FDA-Public Use
  Company Number: US-TEVA-2018-US-869944

PATIENT

DRUGS (1)
  1. DIAMOX SEQUELS [Suspect]
     Active Substance: ACETAZOLAMIDE
     Route: 065

REACTIONS (3)
  - Chest discomfort [Unknown]
  - Anxiety [Unknown]
  - Drug hypersensitivity [Unknown]
